FAERS Safety Report 9676505 (Version 2)
Quarter: 2014Q2

REPORT INFORMATION
  Report Type: Spontaneous
  Country: US (occurrence: US)
  Receive Date: 20131107
  Receipt Date: 20140502
  Transmission Date: 20141212
  Serious: Yes (Hospitalization)
  Sender: FDA-Public Use
  Company Number: US-B.I. PHARMACEUTICALS,INC./RIDGEFIELD-2013-BI-34895BP

PATIENT
  Sex: Male
  Weight: 97.07 kg

DRUGS (9)
  1. PRADAXA [Suspect]
     Indication: ATRIAL FIBRILLATION
     Dosage: 300 MG
     Route: 048
     Dates: start: 20120201, end: 20120520
  2. AMIODARONE [Concomitant]
     Route: 065
  3. ASPIRIN [Concomitant]
     Route: 065
  4. PLAVIX [Concomitant]
     Route: 065
  5. CITALOPRAM [Concomitant]
     Route: 065
  6. LASIX [Concomitant]
     Route: 065
  7. LISINOPRIL [Concomitant]
     Route: 065
  8. MEGACE [Concomitant]
     Route: 065
  9. ZOCOR [Concomitant]
     Route: 065

REACTIONS (5)
  - Muscle haemorrhage [Unknown]
  - Anaemia [Unknown]
  - Ecchymosis [Unknown]
  - Increased tendency to bruise [Unknown]
  - International normalised ratio increased [Unknown]
